FAERS Safety Report 8007151-3 (Version None)
Quarter: 2011Q4

REPORT INFORMATION
  Report Type: 
  Country: None (occurrence: None)
  Receive Date: 20111227
  Receipt Date: 20111215
  Transmission Date: 20120403
  Serious: Yes (Other)
  Sender: FDA-Public Use
  Company Number: DE-UCBSA-047791

PATIENT
  Sex: Female

DRUGS (1)
  1. VIMPAT [Suspect]
     Route: 042

REACTIONS (1)
  - ATRIOVENTRICULAR BLOCK [None]
